FAERS Safety Report 8673619 (Version 2)
Quarter: 2012Q4

REPORT INFORMATION
  Report Type: 
  Country: US (occurrence: US)
  Receive Date: 20120719
  Receipt Date: 20121019
  Transmission Date: 20130627
  Serious: Yes (Other)
  Sender: FDA-Public Use
  Company Number: US-BRISTOL-MYERS SQUIBB COMPANY-16666406

PATIENT
  Age: 70 Year
  Sex: Male

DRUGS (6)
  1. YERVOY [Suspect]
     Indication: METASTATIC MALIGNANT MELANOMA
     Dosage: Yervoy 3mg/3kg, last dose: 19Apr12
     Route: 042
     Dates: start: 20120307
  2. GLIMEPIRIDE [Concomitant]
     Route: 048
  3. FERROUS SULFATE [Concomitant]
     Route: 048
  4. PIOGLITAZONE HCL [Concomitant]
     Route: 048
  5. SERTRALINE [Concomitant]
     Route: 048
  6. SIMVASTATINE [Concomitant]
     Route: 048

REACTIONS (2)
  - Malignant neoplasm progression [Not Recovered/Not Resolved]
  - Enterocolitis [Recovering/Resolving]
